FAERS Safety Report 24658755 (Version 1)
Quarter: 2024Q4

REPORT INFORMATION
  Report Type: Spontaneous
  Country: US (occurrence: None)
  Receive Date: 20241122
  Receipt Date: 20241122
  Transmission Date: 20250115
  Serious: Yes (Hospitalization)
  Sender: Public
  Company Number: None

PATIENT
  Age: 44 Year
  Sex: Female

DRUGS (1)
  1. TOBRAMYCIN [Suspect]
     Active Substance: TOBRAMYCIN\TOBRAMYCIN SULFATE
     Indication: Bronchiectasis
     Dosage: OTHER QUANTITY : 300/5 MG/ML;?OTHER FREQUENCY : 2X A DAY 28 DAYS ON, 28 DAYS OFF;?
     Route: 055
     Dates: start: 201907

REACTIONS (1)
  - Dysphagia [None]

NARRATIVE: CASE EVENT DATE: 20241108
